FAERS Safety Report 11427903 (Version 1)
Quarter: 2015Q3

REPORT INFORMATION
  Report Type: Spontaneous
  Country: US (occurrence: None)
  Receive Date: 20150827
  Receipt Date: 20150827
  Transmission Date: 20151125
  Serious: No
  Sender: FDA-Public Use
  Company Number: None

PATIENT
  Age: 74 Year
  Sex: Male

DRUGS (10)
  1. BOSULIF [Suspect]
     Active Substance: BOSUTINIB MONOHYDRATE
     Indication: NEOPLASM MALIGNANT
     Route: 048
     Dates: start: 20150527
  2. AMLODIPINE [Concomitant]
     Active Substance: AMLODIPINE BESYLATE
  3. CLONIDINE. [Concomitant]
     Active Substance: CLONIDINE
  4. OMEPRAZOLE. [Concomitant]
     Active Substance: OMEPRAZOLE
  5. HYDRALAZINE [Concomitant]
     Active Substance: HYDRALAZINE HYDROCHLORIDE
  6. DOXAZOSIN [Concomitant]
     Active Substance: DOXAZOSIN\DOXAZOSIN MESYLATE
  7. ASCENSIA [Concomitant]
  8. FERROUS SULF [Concomitant]
  9. ALLOPURINOL. [Concomitant]
     Active Substance: ALLOPURINOL
  10. FUROSEMIDE. [Concomitant]
     Active Substance: FUROSEMIDE

REACTIONS (2)
  - Cardiac pacemaker insertion [None]
  - Drug dose omission [None]

NARRATIVE: CASE EVENT DATE: 20150801
